FAERS Safety Report 7092923-2 (Version None)
Quarter: 2010Q4

REPORT INFORMATION
  Report Type: 
  Country: None (occurrence: None)
  Receive Date: 20101110
  Receipt Date: 20101104
  Transmission Date: 20110411
  Serious: No
  Sender: FDA-Public Use
  Company Number: US-PFIZER INC-2010090699

PATIENT
  Sex: Female
  Weight: 68 kg

DRUGS (2)
  1. ARTHROTEC [Suspect]
     Indication: OSTEOARTHRITIS
     Dosage: 75/200 MG/MCG, 2X/DAY
     Route: 048
     Dates: start: 20100706, end: 20100719
  2. LEVOTHYROXINE [Concomitant]
     Indication: THYROID DISORDER
     Dosage: UNK

REACTIONS (2)
  - DRUG INEFFECTIVE [None]
  - HEADACHE [None]
